FAERS Safety Report 9179022 (Version 1)
Quarter: 2012Q4

REPORT INFORMATION
  Report Type: 
  Country: US (occurrence: US)
  Receive Date: 20121029
  Receipt Date: 20121029
  Transmission Date: 20130627
  Serious: No
  Sender: FDA-Public Use
  Company Number: US-AMGEN-USASP2012054566

PATIENT

DRUGS (2)
  1. ENBREL [Suspect]
     Indication: PSORIASIS
     Dosage: 50 mg, 2 times/wk
     Route: 058
     Dates: start: 20120525
  2. METFORMIN [Concomitant]
     Dosage: UNK

REACTIONS (4)
  - Headache [Not Recovered/Not Resolved]
  - Chills [Not Recovered/Not Resolved]
  - Feeling hot [Not Recovered/Not Resolved]
  - Body temperature decreased [Not Recovered/Not Resolved]
